FAERS Safety Report 6974952-X (Version None)
Quarter: 2010Q3

REPORT INFORMATION
  Report Type: 
  Country: None (occurrence: None)
  Receive Date: 20100909
  Receipt Date: 20090112
  Transmission Date: 20110219
  Serious: No
  Sender: FDA-Public Use
  Company Number: US-WYE-H07669209

PATIENT
  Age: 74 Year
  Sex: Female
  Weight: 82.63 kg

DRUGS (3)
  1. PRISTIQ [Suspect]
     Indication: ANXIETY
     Route: 048
     Dates: start: 20090105, end: 20090106
  2. PRISTIQ [Suspect]
     Indication: DEPRESSION
     Dosage: 1/2 TABLET EVERY OTHER DAY
     Route: 048
     Dates: start: 20090111
  3. ATENOLOL [Concomitant]

REACTIONS (5)
  - ABDOMINAL DISCOMFORT [None]
  - COORDINATION ABNORMAL [None]
  - DRUG INEFFECTIVE [None]
  - FATIGUE [None]
  - SOMNOLENCE [None]
